FAERS Safety Report 21823817 (Version 1)
Quarter: 2023Q1

REPORT INFORMATION
  Report Type: Spontaneous
  Country: US (occurrence: US)
  Receive Date: 20230105
  Receipt Date: 20230105
  Transmission Date: 20230418
  Serious: No
  Sender: FDA-Public Use
  Company Number: US-FOUNDATIONCONSUMERHC-2022-US-022973

PATIENT
  Age: 66 Year
  Sex: Female
  Weight: 70.31 kg

DRUGS (1)
  1. ALAVERT ALLERGY [Suspect]
     Active Substance: LORATADINE
     Indication: Hypersensitivity
     Dosage: ONE TABLET DAILY AS NEEDED
     Route: 048
     Dates: start: 202207, end: 20220921

REACTIONS (1)
  - Drug ineffective [Recovered/Resolved]

NARRATIVE: CASE EVENT DATE: 20220701
